FAERS Safety Report 5607289-1 (Version None)
Quarter: 2008Q1

REPORT INFORMATION
  Report Type: 
  Country: None (occurrence: None)
  Receive Date: 20080130
  Receipt Date: 20080122
  Transmission Date: 20080703
  Serious: Yes (Hospitalization)
  Sender: FDA-Public Use
  Company Number: FR-JNJFOC-20080105637

PATIENT
  Age: 55 Year
  Sex: Male

DRUGS (6)
  1. REMICADE [Suspect]
     Route: 042
  2. REMICADE [Suspect]
     Route: 042
  3. REMICADE [Suspect]
     Route: 042
  4. REMICADE [Suspect]
     Indication: CROHN'S DISEASE
     Route: 042
  5. METHOTREXATE [Concomitant]
  6. IMUREL [Concomitant]

REACTIONS (5)
  - CONVULSION [None]
  - FALL [None]
  - JOINT DISLOCATION [None]
  - PERICARDIAL HAEMORRHAGE [None]
  - UPPER LIMB FRACTURE [None]
